FAERS Safety Report 21869752 (Version 1)
Quarter: 2023Q1

REPORT INFORMATION
  Report Type: Spontaneous
  Country: US (occurrence: US)
  Receive Date: 20230117
  Receipt Date: 20230117
  Transmission Date: 20230418
  Serious: No
  Sender: FDA-Public Use
  Company Number: US-AUROBINDO-AUR-APL-2022-007043

PATIENT
  Sex: Female
  Weight: 72.5 kg

DRUGS (2)
  1. PROGESTERONE [Suspect]
     Active Substance: PROGESTERONE
     Indication: In vitro fertilisation
     Dosage: UNK
     Route: 030
  2. ESTROGENS [Concomitant]
     Active Substance: ESTROGENS
     Indication: Product used for unknown indication
     Dosage: UNK
     Route: 065

REACTIONS (1)
  - Drug ineffective [Unknown]
